FAERS Safety Report 15995631 (Version 3)
Quarter: 2023Q1

REPORT INFORMATION
  Report Type: Other
  Country: PL (occurrence: PL)
  Receive Date: 20190222
  Receipt Date: 20230224
  Transmission Date: 20230418
  Serious: Yes (Death, Hospitalization, Other)
  Sender: FDA-Public Use
  Company Number: None

PATIENT
  Age: 58 Year
  Sex: Female

DRUGS (8)
  1. MYCOPHENOLATE MOFETIL [Suspect]
     Active Substance: MYCOPHENOLATE MOFETIL
     Indication: Prophylaxis against transplant rejection
     Dosage: 1000 MG, BID
     Route: 065
  2. RITUXIMAB [Suspect]
     Active Substance: RITUXIMAB
     Indication: Lymphocytotoxic antibody positive
     Route: 065
  3. VALGANCICLOVIR [Suspect]
     Active Substance: VALGANCICLOVIR
     Indication: Cytomegalovirus infection
     Route: 065
  4. PANTOPRAZOLE [Suspect]
     Active Substance: PANTOPRAZOLE
     Indication: Product used for unknown indication
     Dosage: UNK UNK,UNK
     Route: 065
  5. CYCLOSPORINE [Suspect]
     Active Substance: CYCLOSPORINE
     Indication: Prophylaxis against transplant rejection
     Dosage: 50 MG,BID
     Route: 065
  6. METHYLPREDNISOLONE [Suspect]
     Active Substance: METHYLPREDNISOLONE
     Indication: Immunosuppression
     Dosage: UNK UNK,UNK
     Route: 065
  7. TACROLIMUS [Suspect]
     Active Substance: TACROLIMUS
     Indication: Prophylaxis against transplant rejection
     Dosage: .5 MG,QD
     Route: 065
  8. PREDNISONE [Suspect]
     Active Substance: PREDNISONE
     Indication: Prophylaxis against transplant rejection
     Dosage: 10 MG,QD
     Route: 065

REACTIONS (17)
  - Sepsis [Fatal]
  - Moraxella infection [Unknown]
  - Leukopenia [Unknown]
  - Bronchitis [Unknown]
  - Escherichia urinary tract infection [Unknown]
  - Cytomegalovirus infection [Unknown]
  - Hypogammaglobulinaemia [Unknown]
  - Diabetic ketoacidosis [Unknown]
  - Pseudomonas infection [Recovered/Resolved]
  - Ear infection [Unknown]
  - Sinusitis [Unknown]
  - Acinetobacter infection [Unknown]
  - Proteus infection [Unknown]
  - Candida infection [Unknown]
  - Aspergillus infection [Unknown]
  - Klebsiella infection [Unknown]
  - Off label use [Unknown]
